FAERS Safety Report 16070191 (Version 1)
Quarter: 2019Q1

REPORT INFORMATION
  Report Type: Spontaneous
  Country: US (occurrence: US)
  Receive Date: 20190314
  Receipt Date: 20190314
  Transmission Date: 20190418
  Serious: Yes (Life-Threatening, Hospitalization, Other)
  Sender: FDA-Public Use
  Company Number: US-CPL-000935

PATIENT
  Age: 45 Year
  Sex: Female

DRUGS (2)
  1. HYDRALAZINE/HYDRALAZINE HYDROCHLORIDE [Suspect]
     Active Substance: HYDRALAZINE HYDROCHLORIDE
     Indication: HYPERTENSION
     Dosage: 100 MG TID
  2. PROCHLORPERAZINE. [Suspect]
     Active Substance: PROCHLORPERAZINE
     Indication: NAUSEA

REACTIONS (15)
  - Gastrointestinal haemorrhage [Recovered/Resolved]
  - Wound infection [Recovered/Resolved]
  - Sepsis [Recovered/Resolved]
  - Haemodialysis [None]
  - Nausea [Recovered/Resolved]
  - Aortic dissection [None]
  - Anti-neutrophil cytoplasmic antibody positive vasculitis [Recovered/Resolved]
  - Pulmonary alveolar haemorrhage [Recovered/Resolved]
  - Fungaemia [Recovered/Resolved]
  - Myopathy [Recovered/Resolved]
  - Glomerulonephritis rapidly progressive [Recovered/Resolved]
  - Acute kidney injury [Recovered/Resolved]
  - Oropharyngeal oedema [Recovered/Resolved]
  - Cardiac arrest [Recovered/Resolved]
  - Neuropathy peripheral [Recovered/Resolved]
